FAERS Safety Report 14243430 (Version 3)
Quarter: 2017Q4

REPORT INFORMATION
  Report Type: Spontaneous
  Country: CN (occurrence: CN)
  Receive Date: 20171201
  Receipt Date: 20171218
  Transmission Date: 20180321
  Serious: Yes (Hospitalization)
  Sender: FDA-Public Use
  Company Number: CN-ELI_LILLY_AND_COMPANY-CN201711010051

PATIENT
  Sex: Male

DRUGS (4)
  1. HUMULIN NOS [Suspect]
     Active Substance: INSULIN HUMAN
     Dosage: 14 U, AT NOON (DAILY)
     Route: 058
     Dates: start: 20171122
  2. HUMULIN NOS [Suspect]
     Active Substance: INSULIN HUMAN
     Indication: DIABETES MELLITUS
     Dosage: UNK UNK, QID
     Route: 058
     Dates: start: 20171108
  3. HUMULIN NOS [Suspect]
     Active Substance: INSULIN HUMAN
     Dosage: 14 U, AT NIGHT (DAILY)
     Route: 058
     Dates: start: 20171122
  4. HUMULIN NOS [Suspect]
     Active Substance: INSULIN HUMAN
     Dosage: 16 U, UNKNOWN
     Route: 058
     Dates: start: 20171121

REACTIONS (3)
  - Blood glucose increased [Unknown]
  - Gastric haemorrhage [Unknown]
  - Blood glucose fluctuation [Unknown]
